FAERS Safety Report 5981827-1 (Version None)
Quarter: 2008Q4

REPORT INFORMATION
  Report Type: 
  Country: None (occurrence: None)
  Receive Date: 20081205
  Receipt Date: 20081126
  Transmission Date: 20090506
  Serious: Yes (Other)
  Sender: FDA-Public Use
  Company Number: ES-GENENTECH-272628

PATIENT
  Age: 55 Year
  Sex: Female

DRUGS (6)
  1. AVASTIN [Suspect]
     Indication: COLORECTAL CANCER
     Dosage: 350 MG, UNK
     Route: 042
     Dates: start: 20080903, end: 20081015
  2. XELODA [Suspect]
     Indication: COLORECTAL CANCER
     Dosage: 1.3 G, UNK
     Route: 048
     Dates: start: 20080903, end: 20081015
  3. ELOXATIN [Suspect]
     Indication: COLORECTAL CANCER
     Dosage: 137 MG, UNK
     Route: 042
     Dates: start: 20080903, end: 20081015
  4. GRANISETRON [Concomitant]
     Indication: DRUG USE FOR UNKNOWN INDICATION
     Dosage: UNK
     Dates: start: 20080903, end: 20081015
  5. DEXAMETHASONE [Concomitant]
     Indication: DRUG USE FOR UNKNOWN INDICATION
     Dosage: UNK
     Dates: start: 20080903, end: 20081015
  6. DEXCHLORPHENIRAMINE [Concomitant]
     Indication: DRUG USE FOR UNKNOWN INDICATION
     Dosage: UNK
     Dates: start: 20080903, end: 20081015

REACTIONS (3)
  - CYANOSIS [None]
  - LIP OEDEMA [None]
  - TONGUE OEDEMA [None]
